FAERS Safety Report 8595432-4 (Version None)
Quarter: 2012Q3

REPORT INFORMATION
  Report Type: 
  Country: None (occurrence: None)
  Receive Date: 20120815
  Receipt Date: 20120705
  Transmission Date: 20120928
  Serious: Yes (Other)
  Sender: FDA-Public Use
  Company Number: US-BRISTOL-MYERS SQUIBB COMPANY-16743940

PATIENT
  Age: 78 Year
  Sex: Male

DRUGS (1)
  1. ONGLYZA [Suspect]

REACTIONS (1)
  - PANCREATITIS [None]
